FAERS Safety Report 9788909 (Version 1)
Quarter: 2013Q4

REPORT INFORMATION
  Report Type: Spontaneous
  Country: JP (occurrence: JP)
  Receive Date: 20131230
  Receipt Date: 20131230
  Transmission Date: 20140711
  Serious: Yes (Other)
  Sender: FDA-Public Use
  Company Number: JP-GLAXOSMITHKLINE-B0955693A

PATIENT
  Sex: Female

DRUGS (4)
  1. LAMICTAL [Suspect]
     Indication: BIPOLAR DISORDER
     Dosage: 50MG PER DAY
     Route: 048
     Dates: start: 20130907, end: 20130921
  2. NAUZELIN [Concomitant]
     Route: 065
  3. WYPAX [Concomitant]
     Route: 048
  4. BENZALIN [Concomitant]
     Route: 048

REACTIONS (1)
  - Skin disorder [Recovered/Resolved]
